FAERS Safety Report 20516567 (Version 2)
Quarter: 2022Q2

REPORT INFORMATION
  Report Type: Report from Study
  Country: CA (occurrence: CA)
  Receive Date: 20220225
  Receipt Date: 20220426
  Transmission Date: 20220720
  Serious: Yes (Hospitalization, Other)
  Sender: FDA-Public Use
  Company Number: CA-ABBVIE-22K-028-4291666-00

PATIENT
  Age: 74 Year
  Sex: Female

DRUGS (5)
  1. RINVOQ [Suspect]
     Active Substance: UPADACITINIB
     Indication: Rheumatoid arthritis
     Route: 048
     Dates: start: 20211216
  2. COVID-19 VACCINE [Concomitant]
     Indication: COVID-19 prophylaxis
     Dosage: DOSE 1
     Route: 030
  3. COVID-19 VACCINE [Concomitant]
     Dosage: DOSE 2
     Route: 030
  4. COVID-19 VACCINE [Concomitant]
     Dosage: DOSE 3
     Route: 030
  5. COVID-19 VACCINE [Concomitant]
     Dosage: DOSE 4
     Route: 030
     Dates: start: 20220408, end: 20220408

REACTIONS (5)
  - Myocardial infarction [Unknown]
  - Coronary artery occlusion [Unknown]
  - COVID-19 [Recovering/Resolving]
  - Incontinence [Unknown]
  - Insomnia [Unknown]

NARRATIVE: CASE EVENT DATE: 20220201
